FAERS Safety Report 21301611 (Version 1)
Quarter: 2022Q3

REPORT INFORMATION
  Report Type: Spontaneous
  Country: US (occurrence: US)
  Receive Date: 20220907
  Receipt Date: 20220907
  Transmission Date: 20221027
  Serious: No
  Sender: FDA-Public Use
  Company Number: US-GSK-US2022AMR127369

PATIENT
  Sex: Female

DRUGS (1)
  1. BENLYSTA [Suspect]
     Active Substance: BELIMUMAB
     Indication: Product used for unknown indication
     Dosage: 10 MG/KG, Z (AT WEEK 0,2,4 AND EVERY 4 WEEKS THERAFTER)

REACTIONS (2)
  - Headache [Unknown]
  - Vomiting [Unknown]
